FAERS Safety Report 9329361 (Version 1)
Quarter: 2013Q2

REPORT INFORMATION
  Report Type: Spontaneous
  Country: US (occurrence: US)
  Receive Date: 20130604
  Receipt Date: 20130604
  Transmission Date: 20140414
  Serious: No
  Sender: FDA-Public Use
  Company Number: US-SANOFI-AVENTIS-2012SA091231

PATIENT
  Sex: Female

DRUGS (1)
  1. LANTUS [Suspect]
     Route: 058

REACTIONS (5)
  - Asthenia [Unknown]
  - Musculoskeletal stiffness [Unknown]
  - Abasia [Unknown]
  - Confusional state [Unknown]
  - Malaise [Unknown]
